FAERS Safety Report 19950562 (Version 1)
Quarter: 2021Q4

REPORT INFORMATION
  Report Type: Spontaneous
  Country: US (occurrence: US)
  Receive Date: 20211013
  Receipt Date: 20211013
  Transmission Date: 20220303
  Serious: No
  Sender: FDA-Public Use
  Company Number: 2021A764875

PATIENT
  Age: 936 Month
  Sex: Male
  Weight: 74.8 kg

DRUGS (2)
  1. BRILINTA [Suspect]
     Active Substance: TICAGRELOR
     Indication: Stent placement
     Route: 048
     Dates: start: 20210520
  2. METOPROLOL [Suspect]
     Active Substance: METOPROLOL
     Indication: Cardiac operation
     Route: 048
     Dates: start: 20210520

REACTIONS (4)
  - Balance disorder [Recovering/Resolving]
  - Dizziness postural [Unknown]
  - Dizziness [Recovering/Resolving]
  - Product supply issue [Unknown]

NARRATIVE: CASE EVENT DATE: 20210501
